FAERS Safety Report 8962078 (Version 1)
Quarter: 2012Q4

REPORT INFORMATION
  Report Type: 
  Country: US (occurrence: US)
  Receive Date: 20121212
  Receipt Date: 20121212
  Transmission Date: 20130627
  Serious: No
  Sender: FDA-Public Use
  Company Number: US-PFIZER INC-2012310067

PATIENT
  Age: 87 Year
  Sex: Female
  Weight: 77.1 kg

DRUGS (7)
  1. PROTONIX [Suspect]
     Indication: ACID REFLUX (ESOPHAGEAL)
     Dosage: 40 mg, daily
     Dates: end: 201210
  2. PROTONIX [Suspect]
     Indication: GASTROOESOPHAGEAL REFLUX DISEASE
  3. ZANTAC [Suspect]
     Indication: ACID REFLUX (ESOPHAGEAL)
     Dosage: 300 mg, daily
     Route: 048
     Dates: start: 201210
  4. ZANTAC [Suspect]
     Indication: GASTROOESOPHAGEAL REFLUX DISEASE
  5. LIPITOR [Concomitant]
     Dosage: 10 mg, UNK
  6. ZOLOFT [Concomitant]
     Dosage: 50 mg, UNK
  7. NORVASC [Concomitant]
     Dosage: 5 mg, UNK

REACTIONS (2)
  - Expired drug administered [Unknown]
  - Gastric disorder [Not Recovered/Not Resolved]
